FAERS Safety Report 15670007 (Version 1)
Quarter: 2018Q4

REPORT INFORMATION
  Report Type: Spontaneous
  Country: US (occurrence: US)
  Receive Date: 20181129
  Receipt Date: 20181129
  Transmission Date: 20190205
  Serious: Yes (Other)
  Sender: FDA-Public Use
  Company Number: US-TEVA-2018-US-980579

PATIENT
  Age: 28 Year
  Sex: Male

DRUGS (2)
  1. QUETIAPINE. [Suspect]
     Active Substance: QUETIAPINE
     Route: 065
  2. METHADONE [Suspect]
     Active Substance: METHADONE HYDROCHLORIDE
     Route: 065

REACTIONS (6)
  - Overdose [Unknown]
  - Brain injury [Unknown]
  - Unresponsive to stimuli [Recovered/Resolved]
  - Mononeuropathy [Unknown]
  - Brachial plexopathy [Unknown]
  - Ulnar nerve palsy [Unknown]
